FAERS Safety Report 15202159 (Version 1)
Quarter: 2018Q3

REPORT INFORMATION
  Report Type: Spontaneous
  Country: US (occurrence: US)
  Receive Date: 20180726
  Receipt Date: 20180726
  Transmission Date: 20181010
  Serious: No
  Sender: FDA-Public Use
  Company Number: US-009507513-1406USA009252

PATIENT
  Age: 24 Year
  Sex: Female

DRUGS (6)
  1. LOPINAVIR (+) RITONAVIR [Suspect]
     Active Substance: LOPINAVIR\RITONAVIR
     Dosage: 4 DF, QD
     Route: 048
     Dates: start: 2013
  2. DIDANOSINE. [Suspect]
     Active Substance: DIDANOSINE
     Dosage: 400 DF, QD
     Route: 048
     Dates: start: 2013
  3. RITONAVIR. [Suspect]
     Active Substance: RITONAVIR
     Dosage: 100 DF, QD
     Route: 048
     Dates: start: 2009
  4. TENOFOVIR DISOPROXIL FUMARATE. [Suspect]
     Active Substance: TENOFOVIR DISOPROXIL FUMARATE
     Dosage: 300 DF, QD
     Route: 048
     Dates: start: 2013
  5. ISENTRESS [Suspect]
     Active Substance: RALTEGRAVIR POTASSIUM
     Dosage: 400 DF, QD
     Route: 048
     Dates: start: 2009
  6. ATAZANAVIR SULFATE. [Suspect]
     Active Substance: ATAZANAVIR SULFATE
     Dosage: 300 DF, QD
     Route: 048
     Dates: start: 2009

REACTIONS (3)
  - No adverse event [Unknown]
  - Maternal exposure during pregnancy [Recovered/Resolved]
  - Premature delivery [Unknown]

NARRATIVE: CASE EVENT DATE: 20130620
